FAERS Safety Report 4288762-8 (Version None)
Quarter: 2004Q1

REPORT INFORMATION
  Report Type: 
  Country: None (occurrence: None)
  Receive Date: 20040205
  Receipt Date: 20040128
  Transmission Date: 20041129
  Serious: Yes (Hospitalization)
  Sender: FDA-Public Use
  Company Number: DEWYE542629JAN04

PATIENT
  Age: 46 Year
  Sex: Female

DRUGS (6)
  1. VENLAFAXINE HCL [Suspect]
     Dosage: 2-3 TABLETS ORAL
     Route: 048
     Dates: start: 20040128, end: 20040128
  2. ALCOHOL (ETHANOL, , 0) [Suspect]
     Dosage: ORAL
     Route: 048
     Dates: start: 20040128, end: 20040128
  3. INSIDON (OPIPRAMOL HYDROCHLORIDE , , 0) [Suspect]
     Dosage: 2-3 TABLETS
     Route: 048
     Dates: start: 20040128, end: 20040128
  4. JUVENTAL (ATENOLOL, , 0) [Suspect]
     Dosage: ORAL
     Route: 048
     Dates: start: 20040128, end: 20040128
  5. OXAZEPAM (OXAZEPAM, , 0) [Suspect]
     Dosage: 10 TABLETS (OVERDOSE AMOUNT 100 MG)
     Dates: start: 20040128, end: 20040128
  6. RISPERDAL [Suspect]
     Dosage: 2-3 TABLETS
     Route: 048
     Dates: start: 20040128, end: 20040128

REACTIONS (7)
  - APATHY [None]
  - BOWEL SOUNDS ABNORMAL [None]
  - CIRCULATORY COLLAPSE [None]
  - CONVULSION [None]
  - INTENTIONAL OVERDOSE [None]
  - MULTIPLE DRUG OVERDOSE [None]
  - TACHYCARDIA [None]
